FAERS Safety Report 5849625-7 (Version None)
Quarter: 2008Q3

REPORT INFORMATION
  Report Type: 
  Country: None (occurrence: None)
  Receive Date: 20080819
  Receipt Date: 20080807
  Transmission Date: 20090109
  Serious: Yes (Hospitalization)
  Sender: FDA-Public Use
  Company Number: CH-ROCHE-580245

PATIENT
  Sex: Female

DRUGS (6)
  1. CELLCEPT [Suspect]
     Dosage: DOSING REGIMEN: 750 MG X 2 / DAY DOSE REDUCED
     Route: 048
     Dates: start: 20050101
  2. CELLCEPT [Suspect]
     Dosage: DOSING REGIMEN: 500 MG X 2 / DAY
     Route: 048
     Dates: end: 20080607
  3. IMUREK [Concomitant]
     Dates: start: 20080607
  4. PROGRAF [Concomitant]
     Dates: start: 20080101
  5. RAMIPRIL [Concomitant]
  6. NEXIUM [Concomitant]

REACTIONS (3)
  - DIARRHOEA [None]
  - EOSINOPHILIC COLITIS [None]
  - LIVER DISORDER [None]
